FAERS Safety Report 7305245-9 (Version None)
Quarter: 2011Q1

REPORT INFORMATION
  Report Type: 
  Country: None (occurrence: None)
  Receive Date: 20110222
  Receipt Date: 20110218
  Transmission Date: 20110831
  Serious: Yes (Hospitalization, Other)
  Sender: FDA-Public Use
  Company Number: US-PFIZER INC-2010096856

PATIENT
  Sex: Female

DRUGS (3)
  1. GEODON [Suspect]
     Dosage: 160 MG, 1X/DAY
  2. GEODON [Suspect]
     Dosage: 80 MG, 1X/DAY
  3. GEODON [Suspect]
     Dosage: UNK
     Route: 048

REACTIONS (17)
  - STRESS [None]
  - TARDIVE DYSKINESIA [None]
  - INJURY [None]
  - BLOOD GLUCOSE INCREASED [None]
  - WITHDRAWAL SYNDROME [None]
  - WEIGHT INCREASED [None]
  - THINKING ABNORMAL [None]
  - PAIN [None]
  - DYSKINESIA [None]
  - EYE DISORDER [None]
  - SYNCOPE [None]
  - MOTOR DYSFUNCTION [None]
  - COMA [None]
  - NIGHTMARE [None]
  - CARDIAC DISORDER [None]
  - SOMNOLENCE [None]
  - MUSCLE DISORDER [None]
